FAERS Safety Report 7560187-9 (Version None)
Quarter: 2011Q2

REPORT INFORMATION
  Report Type: 
  Country: None (occurrence: None)
  Receive Date: 20110621
  Receipt Date: 20110617
  Transmission Date: 20111010
  Serious: Yes (Hospitalization)
  Sender: FDA-Public Use
  Company Number: A0932069A

PATIENT
  Age: 86 Year
  Sex: Male

DRUGS (1)
  1. PROMACTA [Suspect]
     Dosage: 25MG UNKNOWN
     Route: 048
     Dates: start: 20110509

REACTIONS (3)
  - WHITE BLOOD CELL COUNT INCREASED [None]
  - DYSPNOEA [None]
  - PYREXIA [None]
